FAERS Safety Report 9111828 (Version 1)
Quarter: 2013Q1

REPORT INFORMATION
  Report Type: Spontaneous
  Country: US (occurrence: US)
  Receive Date: 20130219
  Receipt Date: 20130219
  Transmission Date: 20140127
  Serious: No
  Sender: FDA-Public Use
  Company Number: US-BRISTOL-MYERS SQUIBB COMPANY-16749970

PATIENT
  Age: 69 Year
  Sex: Female
  Weight: 74.37 kg

DRUGS (2)
  1. ORENCIA [Suspect]
     Dosage: LAST INFUSION WAS LAST WEEK THURSDAY
     Route: 042
  2. METHOTREXATE [Concomitant]

REACTIONS (3)
  - Stomatitis [Not Recovered/Not Resolved]
  - Musculoskeletal stiffness [Unknown]
  - Mass [Unknown]
